FAERS Safety Report 10755389 (Version 1)
Quarter: 2015Q1

REPORT INFORMATION
  Report Type: Spontaneous
  Country: US (occurrence: US)
  Receive Date: 20150202
  Receipt Date: 20150202
  Transmission Date: 20150721
  Serious: Yes (Other)
  Sender: FDA-Public Use
  Company Number: US-ELI_LILLY_AND_COMPANY-US201501008088

PATIENT
  Sex: Female

DRUGS (2)
  1. INSULIN HUMAN [Suspect]
     Active Substance: INSULIN HUMAN
     Indication: DIABETES MELLITUS
     Dosage: 15 U, UNKNOWN
     Route: 065
  2. INSULIN HUMAN [Suspect]
     Active Substance: INSULIN HUMAN
     Dosage: 30 U, UNKNOWN
     Route: 065

REACTIONS (7)
  - Blood creatinine increased [Unknown]
  - Multi-organ disorder [Unknown]
  - General physical health deterioration [Unknown]
  - Blood albumin increased [Unknown]
  - Blood glucose increased [Unknown]
  - Incorrect dose administered [Unknown]
  - Malaise [Unknown]
